FAERS Safety Report 8309318-3 (Version None)
Quarter: 2012Q2

REPORT INFORMATION
  Report Type: 
  Country: None (occurrence: None)
  Receive Date: 20120425
  Receipt Date: 20120419
  Transmission Date: 20120825
  Serious: Yes (Life-Threatening, Other)
  Sender: FDA-Public Use
  Company Number: US-ASTRAZENECA-2012SE25997

PATIENT
  Sex: Female

DRUGS (1)
  1. SEROQUEL [Suspect]
     Indication: BIPOLAR DISORDER
     Route: 048

REACTIONS (5)
  - SUICIDE ATTEMPT [None]
  - INSOMNIA [None]
  - LOWER LIMB FRACTURE [None]
  - CLAVICLE FRACTURE [None]
  - INTENTIONAL DRUG MISUSE [None]
